FAERS Safety Report 18845472 (Version 1)
Quarter: 2021Q1

REPORT INFORMATION
  Report Type: Spontaneous
  Country: FR (occurrence: FR)
  Receive Date: 20210204
  Receipt Date: 20210204
  Transmission Date: 20210419
  Serious: Yes (Hospitalization)
  Sender: FDA-Public Use
  Company Number: FR-MYLANLABS-2021M1006638

PATIENT
  Age: 75 Year
  Sex: Male

DRUGS (3)
  1. MIDAZOLAM MYLAN 5 MG/ML, SOLUTION INJECTABLE (IM?IV) OU RECTALE [Suspect]
     Active Substance: MIDAZOLAM HYDROCHLORIDE
     Indication: SEDATION
     Dosage: 10 MILLIGRAM, QH
     Route: 042
     Dates: start: 20201109, end: 20201121
  2. C?FOTAXIME MYLAN 1 G, POUDRE POUR SOLUTION INJECTABLE (IM?IV) [Suspect]
     Active Substance: CEFOTAXIME SODIUM
     Indication: BACTERIAL INFECTION
     Dosage: 3 GRAM, QD
     Route: 042
     Dates: start: 20201109, end: 20201114
  3. PANTOPRAZOLE SODIUM. [Suspect]
     Active Substance: PANTOPRAZOLE SODIUM
     Indication: GASTRITIS PROPHYLAXIS
     Dosage: 80 MILLIGRAM, QD
     Route: 042
     Dates: start: 20201109, end: 20201121

REACTIONS (1)
  - Hyperthermia [Recovered/Resolved]

NARRATIVE: CASE EVENT DATE: 20201112
